FAERS Safety Report 5227118-8 (Version None)
Quarter: 2007Q1

REPORT INFORMATION
  Report Type: 
  Country: None (occurrence: None)
  Receive Date: 20070202
  Receipt Date: 20070126
  Transmission Date: 20070707
  Serious: Yes (Other)
  Sender: FDA-Public Use
  Company Number: 2007UW01728

PATIENT
  Age: 28 Year
  Sex: Female
  Weight: 75.3 kg

DRUGS (14)
  1. SYMBICORT [Suspect]
     Indication: ASTHMA
     Dosage: 12/400 UG ONE INHALATION BID
     Route: 055
     Dates: start: 20070120
  2. PREDSIM [Concomitant]
     Indication: ASTHMA
     Route: 048
     Dates: start: 20070120, end: 20070124
  3. RINOSORO [Concomitant]
     Indication: NASAL DISORDER
     Route: 045
     Dates: start: 20070118
  4. BUSONID [Concomitant]
     Indication: BRONCHITIS
     Route: 045
     Dates: start: 20070120
  5. FERROUS SULFATE TAB [Concomitant]
     Route: 048
     Dates: start: 20060701
  6. BUSCOPAN [Concomitant]
     Indication: ABDOMINAL PAIN
     Dosage: QD
     Route: 048
  7. CELESTONE SOLUSPAN [Concomitant]
     Indication: LUNG DISORDER
     Dosage: SINGLE APPLICATION
     Route: 030
     Dates: start: 20070118, end: 20070118
  8. PASSIFLORINE [Concomitant]
     Indication: FEELING OF RELAXATION
     Route: 048
     Dates: start: 20061101
  9. PULMICORT [Concomitant]
     Indication: BRONCHITIS
     Route: 055
     Dates: start: 20061219, end: 20061220
  10. CEFAMOX [Concomitant]
     Indication: DYSPNOEA
     Route: 048
     Dates: start: 20061219, end: 20061229
  11. BAMIFIX [Concomitant]
     Indication: BRONCHITIS
     Route: 045
     Dates: start: 20070104, end: 20070117
  12. BECLOSOL [Concomitant]
     Indication: BRONCHITIS
     Route: 045
     Dates: start: 20070104, end: 20070117
  13. BEROTEC [Concomitant]
     Indication: DYSPNOEA
     Route: 055
     Dates: start: 20060901
  14. ATROVENT [Concomitant]
     Indication: DYSPNOEA
     Route: 055
     Dates: start: 20060901

REACTIONS (4)
  - DRUG EXPOSURE DURING PREGNANCY [None]
  - DRUG INEFFECTIVE [None]
  - DYSPNOEA [None]
  - UTERINE CONTRACTIONS DURING PREGNANCY [None]
